FAERS Safety Report 4788011-8 (Version None)
Quarter: 2005Q3

REPORT INFORMATION
  Report Type: 
  Country: None (occurrence: None)
  Receive Date: 20050914
  Receipt Date: 20050811
  Transmission Date: 20060218
  Serious: Yes (Other)
  Sender: FDA-Public Use
  Company Number: 414125

PATIENT
  Age: 83 Year
  Sex: Female
  Weight: 69.9 kg

DRUGS (4)
  1. BONIVA [Suspect]
     Indication: OSTEOPOROSIS
     Dosage: 150  MG 1 PER MONTH ORAL
     Route: 048
     Dates: start: 20050731
  2. NEXIUM [Concomitant]
  3. LIPITOR [Concomitant]
  4. XALATAN [Concomitant]

REACTIONS (5)
  - ABDOMINAL PAIN UPPER [None]
  - DIARRHOEA [None]
  - DYSPEPSIA [None]
  - FAECES DISCOLOURED [None]
  - FREQUENT BOWEL MOVEMENTS [None]
